FAERS Safety Report 24430377 (Version 3)
Quarter: 2025Q2

REPORT INFORMATION
  Report Type: Spontaneous
  Country: US (occurrence: US)
  Receive Date: 20241013
  Receipt Date: 20250403
  Transmission Date: 20250716
  Serious: Yes (Other)
  Sender: SANOFI AVENTIS
  Company Number: US-SA-2024SA291788

PATIENT
  Age: 54 Year
  Sex: Female

DRUGS (1)
  1. DUPILUMAB [Suspect]
     Active Substance: DUPILUMAB
     Indication: Dermatitis atopic
     Dosage: 300 MG, QOW
     Route: 058

REACTIONS (8)
  - Multiple sclerosis [Unknown]
  - Hypoaesthesia [Unknown]
  - Dry skin [Unknown]
  - Skin haemorrhage [Unknown]
  - Skin fissures [Unknown]
  - Pruritus [Unknown]
  - Dermatitis atopic [Unknown]
  - Hypersensitivity [Unknown]

NARRATIVE: CASE EVENT DATE: 20241001
